FAERS Safety Report 13800946 (Version 2)
Quarter: 2017Q3

REPORT INFORMATION
  Report Type: Spontaneous
  Country: JP (occurrence: JP)
  Receive Date: 20170727
  Receipt Date: 20170814
  Transmission Date: 20171127
  Serious: Yes (Other)
  Sender: FDA-Public Use
  Company Number: JP-JNJFOC-20170717408

PATIENT

DRUGS (3)
  1. PEGASYS [Suspect]
     Active Substance: PEGINTERFERON ALFA-2A
     Indication: HEPATITIS C
     Dosage: THERAPY DURATION: 24 WEEKS
     Route: 058
  2. COPEGUS [Suspect]
     Active Substance: RIBAVIRIN
     Indication: HEPATITIS C
     Dosage: THERAPY DURATION: 24 WEEKS??DOSE: 800 MG 0R 600 MG OR 400 MG
     Route: 048
  3. SOVRIAD [Suspect]
     Active Substance: SIMEPREVIR
     Indication: HEPATITIS C
     Dosage: THERAPY DURATION: 12 WEEKS
     Route: 048

REACTIONS (13)
  - Neutropenia [Unknown]
  - Pharyngitis [Unknown]
  - Anaemia [Unknown]
  - Hyperbilirubinaemia [Unknown]
  - Drug ineffective [Unknown]
  - Fatigue [Unknown]
  - Ascites [Unknown]
  - Facial paralysis [Unknown]
  - Hepatitis C [Unknown]
  - Remission not achieved [Unknown]
  - Hepatic failure [Unknown]
  - Pyelonephritis acute [Unknown]
  - Hyperthyroidism [Unknown]
